FAERS Safety Report 5353368-6 (Version None)
Quarter: 2007Q2

REPORT INFORMATION
  Report Type: 
  Country: None (occurrence: None)
  Receive Date: 20070518
  Receipt Date: 20070328
  Transmission Date: 20071010
  Serious: No
  Sender: FDA-Public Use
  Company Number: TPA2007A00711

PATIENT
  Sex: Female

DRUGS (1)
  1. ROZEREM [Suspect]
     Dosage: 8 MG, QHS, PER ORAL
     Route: 048
     Dates: start: 20070323

REACTIONS (2)
  - BREAST TENDERNESS [None]
  - FLUID RETENTION [None]
